FAERS Safety Report 12666693 (Version 1)
Quarter: 2016Q3

REPORT INFORMATION
  Report Type: Spontaneous
  Country: IN (occurrence: IN)
  Receive Date: 20160819
  Receipt Date: 20160819
  Transmission Date: 20161109
  Serious: Yes (Other)
  Sender: FDA-Public Use
  Company Number: IN-CIPLA LTD.-2016IN17586

PATIENT

DRUGS (9)
  1. IRINOTECAN [Suspect]
     Active Substance: IRINOTECAN
     Indication: COLON CANCER METASTATIC
  2. IRINOTECAN [Suspect]
     Active Substance: IRINOTECAN
     Indication: BLADDER ADENOCARCINOMA STAGE UNSPECIFIED
  3. FOLINIC ACID [Suspect]
     Active Substance: LEUCOVORIN
     Indication: COLON CANCER METASTATIC
  4. IRINOTECAN [Suspect]
     Active Substance: IRINOTECAN
     Indication: METASTASES TO LUNG
     Dosage: FIRST CYCLE, CYCLICAL
     Route: 065
  5. FLUOROURACIL. [Suspect]
     Active Substance: FLUOROURACIL
     Indication: METASTASES TO LUNG
     Dosage: FIRST CYCLE, CYCLICAL
     Route: 065
  6. FLUOROURACIL. [Suspect]
     Active Substance: FLUOROURACIL
     Indication: BLADDER ADENOCARCINOMA STAGE UNSPECIFIED
  7. FLUOROURACIL. [Suspect]
     Active Substance: FLUOROURACIL
     Indication: COLON CANCER METASTATIC
  8. FOLINIC ACID [Suspect]
     Active Substance: LEUCOVORIN
     Indication: BLADDER ADENOCARCINOMA STAGE UNSPECIFIED
  9. FOLINIC ACID [Suspect]
     Active Substance: LEUCOVORIN
     Indication: METASTASES TO LUNG
     Dosage: FIRST CYCLE, CYCLICAL
     Route: 065

REACTIONS (1)
  - Intestinal obstruction [Unknown]
